FAERS Safety Report 21735750 (Version 1)
Quarter: 2022Q4

REPORT INFORMATION
  Report Type: Spontaneous
  Country: US (occurrence: US)
  Receive Date: 20221215
  Receipt Date: 20221215
  Transmission Date: 20230112
  Serious: Yes (Life-Threatening, Hospitalization, Other)
  Sender: FDA-Public Use
  Company Number: US-JUBILANT CADISTA PHARMACEUTICALS-2022JUB00478

PATIENT
  Age: 64 Year
  Sex: Male

DRUGS (1)
  1. VALACYCLOVIR HYDROCHLORIDE [Suspect]
     Active Substance: VALACYCLOVIR HYDROCHLORIDE
     Indication: Herpes zoster
     Dosage: 1000 MG, EVERY 8 HOUR (MEDICATION ERROR)

REACTIONS (4)
  - Incorrect dose administered [Unknown]
  - Encephalopathy [Recovering/Resolving]
  - Hypothermia [Unknown]
  - Hypertension [Unknown]
